FAERS Safety Report 14409535 (Version 1)
Quarter: 2018Q1

REPORT INFORMATION
  Report Type: Spontaneous
  Country: FR (occurrence: FR)
  Receive Date: 20180119
  Receipt Date: 20180119
  Transmission Date: 20180509
  Serious: Yes (Hospitalization)
  Sender: FDA-Public Use
  Company Number: FR-ROCHE-2054366

PATIENT
  Age: 68 Year
  Sex: Female

DRUGS (2)
  1. AVASTIN [Suspect]
     Active Substance: BEVACIZUMAB
     Indication: RECTAL ADENOMA
     Route: 042
     Dates: start: 20170712, end: 20170712
  2. OXALIPLATIN HOSPIRA [Suspect]
     Active Substance: OXALIPLATIN
     Indication: RECTAL ADENOMA
     Route: 042
     Dates: start: 20170712, end: 20170712

REACTIONS (3)
  - Tongue oedema [Recovered/Resolved]
  - Lip oedema [Recovered/Resolved]
  - Urticaria [Recovered/Resolved]

NARRATIVE: CASE EVENT DATE: 20170712
